FAERS Safety Report 18223736 (Version 1)
Quarter: 2020Q3

REPORT INFORMATION
  Report Type: Spontaneous
  Country: JP (occurrence: JP)
  Receive Date: 20200902
  Receipt Date: 20200902
  Transmission Date: 20201103
  Serious: Yes (Hospitalization, Other)
  Sender: FDA-Public Use
  Company Number: JP-DSJP-DSJ-2020-125263

PATIENT
  Age: 61 Year
  Sex: Female

DRUGS (4)
  1. TRAZODONE HYDROCHLORIDE. [Concomitant]
     Active Substance: TRAZODONE HYDROCHLORIDE
     Dosage: UNK
     Route: 065
  2. ENHERTU [Suspect]
     Active Substance: FAM-TRASTUZUMAB DERUXTECAN-NXKI
     Indication: BREAST CANCER
     Dosage: 5.4 MG/KG, ONCE EVERY 3 WK
     Route: 041
     Dates: start: 20200826
  3. SILECE [Concomitant]
     Active Substance: FLUNITRAZEPAM
     Dosage: UNK
     Route: 065
  4. EMEND [Concomitant]
     Active Substance: APREPITANT
     Dosage: UNK
     Route: 065
     Dates: start: 20200826, end: 20200828

REACTIONS (1)
  - Epilepsy [Not Recovered/Not Resolved]

NARRATIVE: CASE EVENT DATE: 20200831
